FAERS Safety Report 4721693-5 (Version None)
Quarter: 2005Q3

REPORT INFORMATION
  Report Type: 
  Country: None (occurrence: None)
  Receive Date: 20050721
  Receipt Date: 20050301
  Transmission Date: 20060218
  Serious: No
  Sender: FDA-Public Use
  Company Number: US-BRISTOL-MYERS SQUIBB COMPANY-12881157

PATIENT
  Age: 75 Year
  Sex: Female
  Weight: 48 kg

DRUGS (22)
  1. COUMADIN [Suspect]
     Indication: CARDIAC ASSISTANCE DEVICE USER
     Dosage: DOSE VALUE:  FRIDAY THROUGH MONDAY 5 MG AND TUESDAY THROUGH THURSDAY 4 MG.
     Dates: start: 20010101
  2. COUMADIN [Suspect]
     Indication: CARDIAC ASSISTANCE DEVICE USER
     Dosage: DOSE VALUE:  FRIDAY THROUGH MONDAY 5 MG AND TUESDAY THROUGH THURSDAY 4 MG.
     Dates: start: 20010101
  3. ACCUPRIL [Concomitant]
     Indication: HYPERTENSION
  4. ACCUPRIL [Concomitant]
     Indication: CARDIAC DISORDER
  5. ALBUTEROL [Concomitant]
     Indication: ASTHMA
  6. CALCIUM + VITAMIN D [Concomitant]
  7. CENTRUM [Concomitant]
  8. COREG [Concomitant]
     Indication: HYPERTENSION
  9. COREG [Concomitant]
     Indication: CARDIAC DISORDER
  10. FOSAMAX [Concomitant]
     Dates: start: 20030101
  11. HYDROCHLOROTHIAZIDE [Concomitant]
     Indication: HYPERTENSION
  12. HYDROCHLOROTHIAZIDE [Concomitant]
     Indication: CARDIAC DISORDER
  13. LANOXIN [Concomitant]
     Indication: HYPERTENSION
  14. LANOXIN [Concomitant]
     Indication: CARDIAC DISORDER
  15. LUMIGAN [Concomitant]
     Indication: GLAUCOMA
  16. NORVASC [Concomitant]
     Indication: HYPERTENSION
  17. NORVASC [Concomitant]
     Indication: CARDIAC DISORDER
  18. PRAVACHOL [Concomitant]
     Indication: BLOOD CHOLESTEROL INCREASED
  19. REMERON [Concomitant]
  20. SPIRIVA [Concomitant]
  21. ASCORBIC ACID [Concomitant]
  22. VITAMIN E [Concomitant]

REACTIONS (1)
  - BONE DENSITY DECREASED [None]
